FAERS Safety Report 5223162-5 (Version None)
Quarter: 2007Q1

REPORT INFORMATION
  Report Type: 
  Country: None (occurrence: None)
  Receive Date: 20070124
  Receipt Date: 20070108
  Transmission Date: 20070707
  Serious: Yes (Disabling, Other)
  Sender: FDA-Public Use
  Company Number: DSA_29235_2007

PATIENT
  Age: 41 Year
  Sex: Male

DRUGS (8)
  1. TEMESTA [Suspect]
     Dosage: DF PRN PO
     Route: 048
     Dates: start: 20060901, end: 20060915
  2. NEUPOGEN [Suspect]
     Dosage: DF Q DAY SC
     Route: 058
     Dates: start: 20060914, end: 20060915
  3. NAVOBAN [Suspect]
     Dosage: DF PRN PO
     Route: 048
     Dates: start: 20060901, end: 20060915
  4. PRIMPERAN /00041901/ [Suspect]
     Dosage: DF PRN PO
     Route: 048
     Dates: start: 20060901, end: 20060915
  5. CHEMOTHERAPEUTIC AGENT [Concomitant]
  6. FOTECORTIN /00016001/ [Concomitant]
  7. NEXIUM [Concomitant]
  8. ZYLORIC [Concomitant]

REACTIONS (7)
  - BACK PAIN [None]
  - BONE PAIN [None]
  - CHEST DISCOMFORT [None]
  - CHEST PAIN [None]
  - NIGHTMARE [None]
  - SENSATION OF PRESSURE [None]
  - SENSORY DISTURBANCE [None]
